FAERS Safety Report 9183815 (Version 1)
Quarter: 2013Q1

REPORT INFORMATION
  Report Type: Spontaneous
  Country: US (occurrence: US)
  Receive Date: 20130322
  Receipt Date: 20130322
  Transmission Date: 20140127
  Serious: No
  Sender: FDA-Public Use
  Company Number: US-BRISTOL-MYERS SQUIBB COMPANY-16619017

PATIENT
  Age: 63 Year
  Sex: Male

DRUGS (1)
  1. ERBITUX SOLN FOR INF [Suspect]
     Indication: SMALL CELL LUNG CANCER
     Dosage: NO OF INF:7,LAST INF ON 23MAY12

REACTIONS (2)
  - Rash [Unknown]
  - Scab [Unknown]
